FAERS Safety Report 6596944-5 (Version None)
Quarter: 2010Q1

REPORT INFORMATION
  Report Type: 
  Country: None (occurrence: None)
  Receive Date: 20100212
  Receipt Date: 20100201
  Transmission Date: 20100710
  Serious: Yes (Death)
  Sender: FDA-Public Use
  Company Number: CLOF-1000774

PATIENT
  Age: 67 Year
  Sex: Male

DRUGS (8)
  1. CLOLAR [Suspect]
     Indication: ACUTE MYELOID LEUKAEMIA
     Dosage: 20 MG/M2, QDX5, INTRAVENOUS
     Route: 042
     Dates: start: 20081113, end: 20081117
  2. CYTARABINE [Suspect]
     Indication: ACUTE MYELOID LEUKAEMIA
     Dosage: 100 MG/M2, QD 24 HR. CONTINUOUS, INTRAVENOUS
     Route: 042
     Dates: start: 20081112, end: 20081119
  3. ASPIRIN [Concomitant]
  4. TPN (NICOTANAMIDE, PYRIDOXINE HYDROCHLORIDE, TYROSINE) [Concomitant]
  5. VORICONAZOLE [Concomitant]
  6. ACYCLOVIR [Concomitant]
  7. LASIX [Concomitant]
  8. IMIPENEM (IMIPENEM) [Concomitant]

REACTIONS (3)
  - AORTIC THROMBOSIS [None]
  - HAEMORRHAGE [None]
  - NERVOUS SYSTEM DISORDER [None]
